FAERS Safety Report 14301484 (Version 1)
Quarter: 2017Q4

REPORT INFORMATION
  Report Type: Spontaneous
  Country: BR (occurrence: BR)
  Receive Date: 20171219
  Receipt Date: 20171219
  Transmission Date: 20180321
  Serious: Yes (Other)
  Sender: FDA-Public Use
  Company Number: BR-GLAXOSMITHKLINE-BR2017GSK193585

PATIENT
  Sex: Female
  Weight: 54 kg

DRUGS (1)
  1. NIQUITIN [Suspect]
     Active Substance: NICOTINE
     Indication: SMOKING CESSATION THERAPY
     Dosage: 21 MG, (PATCH)UNK
     Route: 061

REACTIONS (11)
  - Mental disorder [Unknown]
  - Irritability [Unknown]
  - Headache [Unknown]
  - Decreased appetite [Unknown]
  - Constipation [Unknown]
  - Insomnia [Unknown]
  - Abdominal pain upper [Unknown]
  - Myalgia [Unknown]
  - Retching [Unknown]
  - Suicidal ideation [Unknown]
  - Pyrexia [Unknown]
